FAERS Safety Report 5943557-1 (Version None)
Quarter: 2008Q4

REPORT INFORMATION
  Report Type: 
  Country: None (occurrence: None)
  Receive Date: 20081106
  Receipt Date: 20081027
  Transmission Date: 20090506
  Serious: Yes (Hospitalization, Other)
  Sender: FDA-Public Use
  Company Number: US-ROCHE-594539

PATIENT
  Sex: Male
  Weight: 60.8 kg

DRUGS (16)
  1. CAPECITABINE [Suspect]
     Dosage: FREQUENCY: DAY 1-7. DRUG NAME: CAPECITABINE: 500 AND 150 MG TABS
     Route: 048
     Dates: start: 20080716, end: 20080805
  2. GEMCITABINE HCL [Suspect]
     Route: 042
     Dates: start: 20080716, end: 20080730
  3. ALTACE [Concomitant]
  4. METOCLOPRAMIDE [Concomitant]
  5. ALLOPURINOL [Concomitant]
     Route: 048
  6. LIPITOR [Concomitant]
     Route: 048
  7. NIASPAN [Concomitant]
     Route: 048
  8. COMPAZINE [Concomitant]
     Dosage: FREQUENCY: PRN
     Route: 048
  9. ATIVAN [Concomitant]
     Dosage: FREQUENCY: PRN
     Route: 048
  10. FENTANYL [Concomitant]
     Route: 061
  11. FENTANYL [Concomitant]
     Route: 061
     Dates: start: 20080809
  12. MEGACE [Concomitant]
  13. MIRALAX [Concomitant]
  14. ASPIRIN [Concomitant]
  15. WHEY PROTEIN [Concomitant]
     Dosage: DRUG NAME: WHEY PROTEIN SUPPLEMENT
  16. PANCREATIC ENZYMES [Concomitant]

REACTIONS (4)
  - DEHYDRATION [None]
  - FALL [None]
  - MUSCULOSKELETAL CHEST PAIN [None]
  - RENAL FAILURE [None]
